FAERS Safety Report 8083232-3 (Version None)
Quarter: 2012Q1

REPORT INFORMATION
  Report Type: 
  Country: None (occurrence: None)
  Receive Date: 20120127
  Receipt Date: 20110303
  Transmission Date: 20120608
  Serious: No
  Sender: FDA-Public Use
  Company Number: US-ABBOTT-11P-163-0709199-00

PATIENT
  Sex: Male

DRUGS (2)
  1. HUMIRA [Suspect]
     Indication: CROHN'S DISEASE
     Dates: start: 20110101
  2. PENTASA [Concomitant]
     Indication: CROHN'S DISEASE
     Dates: start: 20050101

REACTIONS (5)
  - MOOD SWINGS [None]
  - INFLUENZA [None]
  - HEADACHE [None]
  - PAIN [None]
  - NASAL CONGESTION [None]
